APPROVED DRUG PRODUCT: LIDOCAINE HYDROCHLORIDE
Active Ingredient: LIDOCAINE HYDROCHLORIDE
Strength: 2GM/VIAL
Dosage Form/Route: INJECTABLE;INJECTION
Application: N018543 | Product #002
Applicant: INTERNATIONAL MEDICATION SYSTEMS LTD
Approved: Approved Prior to Jan 1, 1982 | RLD: No | RS: No | Type: DISCN